FAERS Safety Report 6882278-8 (Version None)
Quarter: 2010Q3

REPORT INFORMATION
  Report Type: 
  Country: None (occurrence: None)
  Receive Date: 20100729
  Receipt Date: 20100722
  Transmission Date: 20110219
  Serious: Yes (Hospitalization)
  Sender: FDA-Public Use
  Company Number: GB-PERRIGO-10GB011488

PATIENT
  Age: 72 Year
  Sex: Female

DRUGS (5)
  1. IBUPROFEN [Suspect]
     Indication: INFLAMMATION
     Dosage: 200 MG, 6 TIMES PER DAY
     Route: 048
     Dates: start: 20100703, end: 20100705
  2. IBUPROFEN [Suspect]
     Indication: TOOTHACHE
     Dosage: 400 MG, 6 TIMES PER DAY
     Route: 048
     Dates: start: 20100706, end: 20100708
  3. COD LIVER OIL [Concomitant]
     Indication: PRODUCT USED FOR UNKNOWN INDICATION
     Dosage: UNK
     Route: 065
  4. GLUCOSAMINE [Concomitant]
     Indication: PRODUCT USED FOR UNKNOWN INDICATION
     Dosage: UNK
     Route: 065
  5. EZETIMIBE/SIMVASTATIN [Concomitant]
     Indication: BLOOD CHOLESTEROL INCREASED
     Dosage: 1 DOSE DAILY
     Route: 065

REACTIONS (3)
  - DYSPHAGIA [None]
  - HYPOAESTHESIA ORAL [None]
  - SWOLLEN TONGUE [None]
